FAERS Safety Report 6708023 (Version 2)
Quarter: 2014Q2

REPORT INFORMATION
  Report Type: Spontaneous
  Country: US (occurrence: None)
  Receive Date: 20080529
  Receipt Date: 20140616
  Transmission Date: 20141212
  Serious: Yes (Hospitalization, Other)
  Sender: FDA-Public Use
  Company Number: CIP07002339

PATIENT
  Age: 69 Year
  Sex: Female

DRUGS (9)
  1. ACTONEL [Suspect]
     Dosage: ORAL
     Route: 048
  2. AREDIA [Suspect]
     Indication: PLASMA CELL MYELOMA
     Dosage: IV NOS
     Route: 042
     Dates: start: 200112, end: 200404
  3. EVISTA(RALOXIFENE HYDROCHLORIDE) [Concomitant]
  4. TOPROL(METOPROLOL SUCCINATE) [Concomitant]
  5. ZOCOR(SIMVASTATIN) [Concomitant]
  6. NEXIUM/01479302/(ESOMEPRAZOLE MAGNESIUM) [Concomitant]
  7. NEURONTIN(GABAPENTIN) [Concomitant]
  8. FOLIC ACID(FOLIC ACID) [Concomitant]
  9. CALCIUM (CALCIUM) [Concomitant]

REACTIONS (22)
  - Osteonecrosis [None]
  - Infection [None]
  - Osteonecrosis of jaw [None]
  - Exposed bone in jaw [None]
  - Primary sequestrum [None]
  - Impaired healing [None]
  - Dental fistula [None]
  - Tooth fracture [None]
  - Oroantral fistula [None]
  - Gingivitis [None]
  - Osteomyelitis [None]
  - Gingival swelling [None]
  - Purulence [None]
  - Bone erosion [None]
  - Device failure [None]
  - Deformity [None]
  - Loose tooth [None]
  - Purulent discharge [None]
  - Sinusitis [None]
  - Periodontal disease [None]
  - Tooth injury [None]
  - Pain [None]
